FAERS Safety Report 5678649-8 (Version None)
Quarter: 2008Q1

REPORT INFORMATION
  Report Type: 
  Country: None (occurrence: None)
  Receive Date: 20080325
  Receipt Date: 20080311
  Transmission Date: 20080703
  Serious: Yes (Hospitalization, Other)
  Sender: FDA-Public Use
  Company Number: JP-ELI_LILLY_AND_COMPANY-JP200612000683

PATIENT
  Age: 70 Year
  Sex: Female

DRUGS (4)
  1. GEMZAR [Suspect]
     Indication: PANCREATIC CARCINOMA NON-RESECTABLE
     Dosage: 400 MG, OTHER
     Route: 042
     Dates: start: 20021201
  2. GEMZAR [Suspect]
     Dosage: 1000 MG, UNK
     Route: 042
     Dates: start: 20030101
  3. GEMZAR [Suspect]
     Dosage: UNK, UNK
     Route: 042
     Dates: start: 20051101
  4. THERAPEUTIC RADIOPHARMACEUTICALS [Concomitant]
     Indication: PANCREATIC CARCINOMA NON-RESECTABLE
     Dosage: UNK, UNK
     Dates: start: 20021201

REACTIONS (5)
  - CANDIDA PNEUMONIA [None]
  - DISSEMINATED INTRAVASCULAR COAGULATION [None]
  - NECROTISING FASCIITIS [None]
  - NEOPLASM PROGRESSION [None]
  - SEPSIS [None]
